FAERS Safety Report 9096084 (Version 7)
Quarter: 2014Q1

REPORT INFORMATION
  Report Type: Report from Study
  Country: SE (occurrence: SE)
  Receive Date: 20130207
  Receipt Date: 20140210
  Transmission Date: 20141002
  Serious: Yes (Hospitalization)
  Sender: FDA-Public Use
  Company Number: SE-ROCHE-793433

PATIENT
  Age: 51 Year
  Sex: Female
  Weight: 113.6 kg

DRUGS (12)
  1. BEVACIZUMAB [Suspect]
     Indication: OVARIAN CANCER
     Dosage: LAST DOSE PRIOR TO SAE: 29/SEP/2011. LAST DOSE PRIOR TO THE FIRST EPISODE OF FEBRILE NEUTROPENIA: 07
     Route: 042
     Dates: start: 20110707, end: 20111119
  2. PACLITAXEL [Suspect]
     Indication: OVARIAN CANCER
     Dosage: LAST DOSE PRIOR TO SAE:29/SEP/2011. LAST DOSE PRIOR TO THE FIRST EPISODE OF FEBRILE NEUTROPENIA: 07/
     Route: 042
     Dates: start: 20110707, end: 20111119
  3. PACLITAXEL [Suspect]
     Dosage: DOSE REDUCED; LAST DOSE  PRIOR TO SAE:09/NOV/2011
     Route: 042
     Dates: start: 20110729
  4. CARBOPLATIN [Suspect]
     Indication: OVARIAN CANCER
     Dosage: LAST DOSE PRIOR TO 1ST SAE: 29/SEP/2011, 2ND SAE: 09/NOV/2011. LAST DOSE PRIOR TO THE FIRST EPISODE
     Route: 042
     Dates: start: 20110707, end: 20111119
  5. LEVAXIN [Concomitant]
     Route: 065
  6. ATENOLOL [Concomitant]
     Route: 065
  7. NEXIUM [Concomitant]
     Route: 065
  8. IBUPROFEN [Concomitant]
     Route: 065
  9. PARACETAMOL [Concomitant]
     Route: 065
  10. ONDANSETRON [Concomitant]
     Route: 065
  11. LOPERAMIDE [Concomitant]
     Route: 065
  12. DEXAMETASON [Concomitant]
     Route: 065

REACTIONS (5)
  - Abdominal hernia [Recovered/Resolved]
  - Back pain [Recovered/Resolved]
  - Febrile neutropenia [Recovered/Resolved]
  - Pharyngitis [Recovered/Resolved]
  - Abdominal hernia obstructive [Recovered/Resolved]
